FAERS Safety Report 11227478 (Version 1)
Quarter: 2015Q2

REPORT INFORMATION
  Report Type: Other
  Country: GB (occurrence: GB)
  Receive Date: 20150630
  Receipt Date: 20150630
  Transmission Date: 20150821
  Serious: Yes (Death, Hospitalization, Other)
  Sender: FDA-Public Use
  Company Number: GB-PERRIGO-15GB006526

PATIENT
  Age: 21 Year
  Sex: Female

DRUGS (3)
  1. IBUPROFEN 16028/0027 200 MG [Suspect]
     Active Substance: IBUPROFEN
     Indication: CONTUSION
     Dosage: UNK
     Route: 065
  2. PARACETAMOL 16028/0012 500 MG [Suspect]
     Active Substance: ACETAMINOPHEN
     Indication: CONTUSION
     Dosage: UNK
     Route: 065
  3. RIGEVIDON /00022701/ [Suspect]
     Active Substance: ETHINYL ESTRADIOL\LEVONORGESTREL
     Indication: MENSTRUATION IRREGULAR
     Dosage: UNK
     Route: 065

REACTIONS (5)
  - Loss of consciousness [None]
  - Pain [None]
  - Heart rate increased [None]
  - Pulmonary embolism [Fatal]
  - Syncope [None]
